FAERS Safety Report 11073370 (Version 3)
Quarter: 2015Q2

REPORT INFORMATION
  Report Type: Spontaneous
  Country: US (occurrence: US)
  Receive Date: 20150428
  Receipt Date: 20150508
  Transmission Date: 20150821
  Serious: No
  Sender: FDA-Public Use
  Company Number: US-TEVA-557557USA

PATIENT
  Sex: Female

DRUGS (1)
  1. PROVIGIL [Suspect]
     Active Substance: MODAFINIL
     Indication: NARCOLEPSY
     Route: 065

REACTIONS (2)
  - Depression [Unknown]
  - Drug ineffective [Unknown]
